FAERS Safety Report 18650077 (Version 1)
Quarter: 2020Q4

REPORT INFORMATION
  Report Type: Report from Study
  Country: US (occurrence: US)
  Receive Date: 20201222
  Receipt Date: 20201222
  Transmission Date: 20210114
  Serious: Yes (Death)
  Sender: FDA-Public Use
  Company Number: US-JNJFOC-20201227342

PATIENT
  Age: 52 Year
  Sex: Male

DRUGS (2)
  1. ESKETAMINE [Suspect]
     Active Substance: ESKETAMINE
     Dosage: 84MG; TOTAL DOSE: 1
     Dates: start: 20190906, end: 20190906
  2. ESKETAMINE [Suspect]
     Active Substance: ESKETAMINE
     Indication: DEPRESSION
     Dosage: 56MG, 3 TOTAL DOSES
     Dates: start: 20190828, end: 20190903

REACTIONS (1)
  - Death [Fatal]

NARRATIVE: CASE EVENT DATE: 20190907
